FAERS Safety Report 18747893 (Version 14)
Quarter: 2025Q1

REPORT INFORMATION
  Report Type: Report from Study
  Country: CO (occurrence: CO)
  Receive Date: 20210115
  Receipt Date: 20250304
  Transmission Date: 20250409
  Serious: Yes (Life-Threatening, Hospitalization, Other)
  Sender: TAKEDA
  Company Number: CO-TAKEDA-2021TUS000894

PATIENT
  Age: 19 Year
  Sex: Female
  Weight: 50 kg

DRUGS (3)
  1. ICATIBANT [Suspect]
     Active Substance: ICATIBANT ACETATE
     Indication: Hereditary angioedema
  2. ICATIBANT [Suspect]
     Active Substance: ICATIBANT ACETATE
  3. HEPARIN [Concomitant]
     Active Substance: HEPARIN SODIUM

REACTIONS (18)
  - Hereditary angioedema [Recovered/Resolved]
  - Osteomyelitis [Recovering/Resolving]
  - Lower limb fracture [Recovering/Resolving]
  - Wound secretion [Recovering/Resolving]
  - Accident [Recovering/Resolving]
  - Bacterial infection [Recovering/Resolving]
  - Inflammation [Recovered/Resolved]
  - Limb injury [Recovering/Resolving]
  - Anaemia [Recovering/Resolving]
  - Decubitus ulcer [Recovering/Resolving]
  - Gait disturbance [Recovering/Resolving]
  - Pain [Recovering/Resolving]
  - Arthralgia [Recovering/Resolving]
  - Wound haemorrhage [Recovering/Resolving]
  - Decreased appetite [Recovering/Resolving]
  - Headache [Recovered/Resolved]
  - Pyrexia [Recovering/Resolving]
  - Nausea [Recovering/Resolving]

NARRATIVE: CASE EVENT DATE: 20201227
